FAERS Safety Report 17190797 (Version 1)
Quarter: 2019Q4

REPORT INFORMATION
  Report Type: Spontaneous
  Country: US (occurrence: US)
  Receive Date: 20191220
  Receipt Date: 20191220
  Transmission Date: 20200122
  Serious: Yes (Other)
  Sender: FDA-Public Use
  Company Number: None

PATIENT
  Age: 69 Year
  Sex: Male
  Weight: 110.25 kg

DRUGS (22)
  1. ISOSORBIDE MONONITRATE SA 30MG [Concomitant]
  2. FUROSEMIDE 40MG [Concomitant]
     Active Substance: FUROSEMIDE
  3. LISINOPRIL. [Concomitant]
     Active Substance: LISINOPRIL
  4. HYDRALAZINE 100MG [Concomitant]
     Active Substance: HYDRALAZINE HYDROCHLORIDE
  5. PHEYTOIN 500MG [Concomitant]
  6. 70/30 NPH/REG INSULIN [Concomitant]
  7. FERROUS GLUCONATE 324MG [Concomitant]
  8. GABAPETIN 200MG [Concomitant]
  9. EMPAGLIFLOZIN 25MG [Concomitant]
  10. CLOPIDOGREL 75MG DAILY [Concomitant]
  11. OXYCODONE 5MG [Concomitant]
     Active Substance: OXYCODONE
  12. VENLAFAXINE [Concomitant]
     Active Substance: VENLAFAXINE HYDROCHLORIDE
  13. CLONIDINE 3MG [Concomitant]
  14. SCOPOLAMINE PATCH [Concomitant]
     Active Substance: SCOPOLAMINE
  15. DIAZEPAM 3MG [Concomitant]
  16. SERTALINE 150MG [Concomitant]
  17. ALOGLIPTIN 12.5MG [Concomitant]
  18. ESOMEPRAZOLE 40MG [Concomitant]
     Active Substance: ESOMEPRAZOLE
  19. CARVEILOLOL 50MG [Concomitant]
  20. VICTOZA [Suspect]
     Active Substance: LIRAGLUTIDE
     Indication: TYPE 2 DIABETES MELLITUS
     Route: 058
     Dates: start: 20191218, end: 20191219
  21. ONDANSETRON 4MG [Concomitant]
     Active Substance: ONDANSETRON
  22. TAMSULOSIN 0.4MG [Concomitant]
     Active Substance: TAMSULOSIN

REACTIONS (2)
  - Vomiting [None]
  - Nausea [None]

NARRATIVE: CASE EVENT DATE: 20191219
